FAERS Safety Report 6143099-7 (Version None)
Quarter: 2009Q2

REPORT INFORMATION
  Report Type: 
  Country: None (occurrence: None)
  Receive Date: 20090403
  Receipt Date: 20090325
  Transmission Date: 20091009
  Serious: Yes (Other)
  Sender: FDA-Public Use
  Company Number: GB-JNJFOC-20060103970

PATIENT
  Sex: Male

DRUGS (8)
  1. REMICADE [Suspect]
     Indication: RHEUMATOID ARTHRITIS
     Dosage: 3 YEARS, 3 MG/KG
     Route: 042
  2. ACETAMINOPHEN [Suspect]
     Indication: DRUG USE FOR UNKNOWN INDICATION
  3. FERROUS FUMERATE [Suspect]
     Indication: DRUG USE FOR UNKNOWN INDICATION
  4. AZATHIOPRINE [Concomitant]
     Indication: RHEUMATOID ARTHRITIS
     Dosage: 1 DAYS
  5. OMEPRAZOLE [Concomitant]
     Route: 048
  6. ATENOLOL [Concomitant]
     Route: 048
  7. ACETAMINOPHEN W/ CODEINE [Concomitant]
  8. FERROUS SULFATE TAB [Concomitant]

REACTIONS (3)
  - MULTIPLE DRUG OVERDOSE [None]
  - PERSONALITY CHANGE [None]
  - SUICIDE ATTEMPT [None]
